FAERS Safety Report 21237117 (Version 2)
Quarter: 2022Q3

REPORT INFORMATION
  Report Type: Spontaneous
  Country: IL (occurrence: IL)
  Receive Date: 20220822
  Receipt Date: 20220903
  Transmission Date: 20221027
  Serious: Yes (Other)
  Sender: FDA-Public Use
  Company Number: IL-SA-SAC20220817000207

PATIENT

DRUGS (1)
  1. MYOZYME [Suspect]
     Active Substance: ALGLUCOSIDASE ALFA
     Dosage: UNK

REACTIONS (2)
  - Vascular device infection [Unknown]
  - Incorrect dose administered [Unknown]
